FAERS Safety Report 9144927 (Version 3)
Quarter: 2013Q1

REPORT INFORMATION
  Report Type: Spontaneous
  Country: US (occurrence: US)
  Receive Date: 20130307
  Receipt Date: 20130322
  Transmission Date: 20140127
  Serious: Yes (Other)
  Sender: FDA-Public Use
  Company Number: US-BIOGENIDEC-2012BI061409

PATIENT
  Age: 59 Year
  Sex: Male

DRUGS (6)
  1. AVONEX [Suspect]
     Indication: MULTIPLE SCLEROSIS
     Route: 030
     Dates: start: 20010318
  2. AVONEX [Suspect]
     Indication: MULTIPLE SCLEROSIS
     Route: 030
     Dates: start: 200308
  3. AVONEX [Suspect]
     Indication: MULTIPLE SCLEROSIS
     Route: 030
     Dates: start: 200409
  4. AVONEX [Suspect]
     Indication: MULTIPLE SCLEROSIS
     Route: 030
  5. PAIN KILLER (NOS) [Concomitant]
     Indication: POSTOPERATIVE ANALGESIA
  6. UNKNOWN MEDICATION [Concomitant]
     Indication: POST PROCEDURAL COMPLICATION

REACTIONS (14)
  - Prostate cancer [Not Recovered/Not Resolved]
  - Muscle rupture [Not Recovered/Not Resolved]
  - Fall [Recovered/Resolved]
  - Ligament rupture [Recovered/Resolved with Sequelae]
  - Urinary tract infection [Recovered/Resolved]
  - Dysuria [Recovered/Resolved]
  - Urinary retention [Not Recovered/Not Resolved]
  - Tremor [Recovered/Resolved]
  - Somnolence [Recovered/Resolved]
  - Mobility decreased [Not Recovered/Not Resolved]
  - Sciatica [Not Recovered/Not Resolved]
  - Multiple sclerosis [Not Recovered/Not Resolved]
  - Pain [Not Recovered/Not Resolved]
  - Influenza like illness [Recovered/Resolved]
